FAERS Safety Report 14480429 (Version 3)
Quarter: 2018Q2

REPORT INFORMATION
  Report Type: Spontaneous
  Country: US (occurrence: US)
  Receive Date: 20180202
  Receipt Date: 20180418
  Transmission Date: 20180711
  Serious: No
  Sender: FDA-Public Use
  Company Number: PHEH2018US003930

PATIENT
  Age: 94 Year
  Sex: Male

DRUGS (1)
  1. TRAVATAN Z [Suspect]
     Active Substance: TRAVOPROST
     Indication: GLAUCOMA
     Route: 047

REACTIONS (3)
  - Product physical consistency issue [Unknown]
  - Liquid product physical issue [Unknown]
  - Intraocular pressure increased [Unknown]
